FAERS Safety Report 8644678 (Version 2)
Quarter: 2012Q4

REPORT INFORMATION
  Report Type: 
  Country: NO (occurrence: NO)
  Receive Date: 20120702
  Receipt Date: 20121002
  Transmission Date: 20130627
  Serious: Yes (Hospitalization, Other)
  Sender: FDA-Public Use
  Company Number: NO-ROCHE-1082408

PATIENT
  Sex: Male

DRUGS (8)
  1. MABTHERA [Suspect]
     Indication: RHEUMATOID ARTHRITIS
     Route: 042
     Dates: start: 200706
  2. MABTHERA [Suspect]
     Indication: WEGENER^S GRANULOMATOSIS
     Dosage: given after 2 months from the event
     Route: 042
  3. AZATHIOPRINE [Suspect]
     Indication: RHEUMATOID ARTHRITIS
  4. AZATHIOPRINE [Suspect]
     Indication: WEGENER^S GRANULOMATOSIS
  5. CELLCEPT [Suspect]
     Indication: WEGENER^S GRANULOMATOSIS
  6. CYCLOSPORINE [Suspect]
     Indication: WEGENER^S GRANULOMATOSIS
  7. CYCLOPHOSPHAMIDE [Concomitant]
  8. IVIG [Concomitant]
     Indication: HYPOGAMMAGLOBULINAEMIA
     Route: 042

REACTIONS (4)
  - Pneumonia [Unknown]
  - Neutropenia [Recovered/Resolved]
  - Hypogammaglobulinaemia [Unknown]
  - Leukopenia [Unknown]
